FAERS Safety Report 8991243 (Version 1)
Quarter: 2012Q4

REPORT INFORMATION
  Report Type: Report from Study
  Country: CA (occurrence: CA)
  Receive Date: 20121231
  Receipt Date: 20121231
  Transmission Date: 20130627
  Serious: Yes (Other)
  Sender: FDA-Public Use
  Company Number: CA-ROCHE-1170838

PATIENT
  Age: 49 Year
  Sex: Male
  Weight: 111.22 kg

DRUGS (4)
  1. XOLAIR [Suspect]
     Indication: ASTHMA
     Dosage: 300 mg, 1/Month
     Route: 058
     Dates: start: 20060310
  2. XOLAIR [Suspect]
     Dosage: 300 mg, 1/Month
     Route: 058
     Dates: start: 20100211
  3. XOLAIR [Suspect]
     Dosage: 300 mg, 1/Month
     Route: 058
     Dates: start: 20100408
  4. XOLAIR [Suspect]
     Route: 065
     Dates: start: 20060428

REACTIONS (13)
  - Blood pressure increased [Unknown]
  - Respiratory disorder [Unknown]
  - Nasopharyngitis [Unknown]
  - Cough [Unknown]
  - Sinus congestion [Unknown]
  - Dyspnoea [Unknown]
  - Chest discomfort [Unknown]
  - Drug ineffective [Unknown]
  - Hypersensitivity [Unknown]
  - Ear infection [Unknown]
  - Wheezing [Unknown]
  - Hypopnoea [Unknown]
  - Respiratory rate increased [Unknown]
